FAERS Safety Report 24841907 (Version 3)
Quarter: 2025Q2

REPORT INFORMATION
  Report Type: Report from Study
  Country: US (occurrence: US)
  Receive Date: 20250114
  Receipt Date: 20250622
  Transmission Date: 20250716
  Serious: Yes (Hospitalization)
  Sender: ABBVIE
  Company Number: US-ABBVIE-6083885

PATIENT
  Age: 37 Year
  Sex: Male

DRUGS (1)
  1. RINVOQ [Suspect]
     Active Substance: UPADACITINIB
     Indication: Colitis ulcerative
     Dosage: 30 TABLETS
     Route: 048
     Dates: start: 20241001, end: 20241223

REACTIONS (4)
  - Wound cellulitis [Recovered/Resolved]
  - Skin laceration [Recovered/Resolved]
  - Joint injury [Recovered/Resolved]
  - Wound sepsis [Recovered/Resolved]

NARRATIVE: CASE EVENT DATE: 20241201
